FAERS Safety Report 23718170 (Version 2)
Quarter: 2024Q2

REPORT INFORMATION
  Report Type: Spontaneous
  Country: CN (occurrence: CN)
  Receive Date: 20240408
  Receipt Date: 20240417
  Transmission Date: 20240716
  Serious: Yes (Other)
  Sender: FDA-Public Use
  Company Number: CN-CHEPLA-2024003657

PATIENT
  Age: 73 Year
  Sex: Female

DRUGS (2)
  1. CAPECITABINE [Suspect]
     Active Substance: CAPECITABINE
     Indication: Colon cancer
     Dosage: DAYS 1 - 14, 6 CYCLES ?DAILY DOSE: 3 GRAM
     Route: 048
     Dates: start: 202110, end: 202202
  2. OXALIPLATIN [Suspect]
     Active Substance: OXALIPLATIN
     Indication: Colon cancer
     Dosage: DAY 1,RECEIVED 6 CYCLES OF ADJUVANT CHEMOTHERAPY 6 CYCLES
     Dates: start: 202110, end: 202202

REACTIONS (4)
  - Acute myeloid leukaemia [Unknown]
  - Myelosuppression [Recovered/Resolved]
  - Urticaria [Unknown]
  - Nasopharyngitis [Unknown]
